FAERS Safety Report 9543959 (Version 1)
Quarter: 2013Q2

REPORT INFORMATION
  Report Type: Spontaneous
  Country: US (occurrence: None)
  Receive Date: 20130524
  Receipt Date: 20130524
  Transmission Date: 20140414
  Serious: Yes (Other)
  Sender: FDA-Public Use
  Company Number: PHEH2013US001259

PATIENT
  Age: 34 Year
  Sex: Male
  Weight: 136.1 kg

DRUGS (1)
  1. GILENYA [Suspect]
     Indication: MULTIPLE SCLEROSIS
     Route: 048
     Dates: start: 20130109

REACTIONS (4)
  - Dyspnoea [None]
  - Chest pain [None]
  - Hypoaesthesia [None]
  - Cystitis [None]
